FAERS Safety Report 5642778-5 (Version None)
Quarter: 2008Q1

REPORT INFORMATION
  Report Type: 
  Country: None (occurrence: None)
  Receive Date: 20080228
  Receipt Date: 20080218
  Transmission Date: 20080703
  Serious: Yes (Disabling)
  Sender: FDA-Public Use
  Company Number: GB-AMGEN-US266450

PATIENT
  Age: 63 Year
  Sex: Male
  Weight: 83 kg

DRUGS (7)
  1. ENBREL [Suspect]
     Indication: DRUG USE FOR UNKNOWN INDICATION
     Dosage: 50MG, FREQUENCY UNKNOWN
     Route: 058
     Dates: start: 20060201
  2. ENBREL [Suspect]
     Dosage: 50MG, FREQUENCY UNKNOWN
     Route: 058
  3. WARFARIN SODIUM [Concomitant]
     Dosage: UNKNOWN
     Route: 048
  4. LOSARTAN POTASSIUM [Concomitant]
     Dosage: 100MG, FREQUENCY UNKNOWN
     Route: 048
  5. MOXONIDINE [Concomitant]
     Dosage: 200UG, FREQUENCY UNKNOWN
     Route: 048
  6. ATORVASTATIN [Concomitant]
     Dosage: UNKNOWN
     Route: 048
  7. FUROSEMIDE [Concomitant]
     Dosage: 80MG, FREQUENCY UNKNOWN
     Route: 048

REACTIONS (1)
  - BRONCHITIS [None]
